FAERS Safety Report 9511664 (Version 1)
Quarter: 2013Q1

REPORT INFORMATION
  Report Type: Spontaneous
  Country: US (occurrence: None)
  Receive Date: 20130305
  Receipt Date: 20130305
  Transmission Date: 20140127
  Serious: Yes (Other)
  Sender: FDA-Public Use
  Company Number: 163-21880-12030570

PATIENT
  Age: 64 Year
  Sex: Male
  Weight: 77.57 kg

DRUGS (1)
  1. REVLIMID [Suspect]
     Indication: PLASMA CELL MYELOMA
     Dosage: 25 MG, QD X 14 DAYS, 7 DAYS OFF, PO
     Route: 048
     Dates: start: 20111117, end: 20120307

REACTIONS (4)
  - Neuropathy peripheral [None]
  - Weight decreased [None]
  - Decreased appetite [None]
  - Abdominal pain upper [None]
